FAERS Safety Report 5406273-0 (Version None)
Quarter: 2007Q3

REPORT INFORMATION
  Report Type: 
  Country: None (occurrence: None)
  Receive Date: 20070806
  Receipt Date: 20070726
  Transmission Date: 20080115
  Serious: Yes (Other)
  Sender: FDA-Public Use
  Company Number: US-JNJFOC-20070706802

PATIENT
  Sex: Male

DRUGS (2)
  1. TOPAMAX [Suspect]
     Indication: CONVULSION PROPHYLAXIS
     Dosage: 150 MG MORNING; 150 MG NOON; 200 MG NIGHT
  2. PHENOBARBITAL TAB [Concomitant]
     Indication: CONVULSION PROPHYLAXIS
     Dosage: 15 MG AM; 30 MG PM
     Route: 048

REACTIONS (1)
  - RENAL FAILURE [None]
